FAERS Safety Report 8829119 (Version 2)
Quarter: 2012Q4

REPORT INFORMATION
  Report Type: 
  Country: US (occurrence: US)
  Receive Date: 20121008
  Receipt Date: 20121029
  Transmission Date: 20130627
  Serious: Yes (Other)
  Sender: FDA-Public Use
  Company Number: CHPA2012US021061

PATIENT
  Age: 77 Year
  Sex: Female

DRUGS (1)
  1. EXCEDRIN TENSION HEADACHE [Suspect]
     Indication: BACK PAIN
     Dosage: 1 DF, PRN
     Route: 048

REACTIONS (3)
  - Spinal column stenosis [Recovered/Resolved]
  - Intervertebral disc disorder [Recovered/Resolved]
  - Underdose [Unknown]
